FAERS Safety Report 7507915-6 (Version None)
Quarter: 2011Q2

REPORT INFORMATION
  Report Type: 
  Country: None (occurrence: None)
  Receive Date: 20110527
  Receipt Date: 20110516
  Transmission Date: 20111010
  Serious: Yes (Hospitalization)
  Sender: FDA-Public Use
  Company Number: GR-BRISTOL-MYERS SQUIBB COMPANY-15747942

PATIENT
  Age: 28 Year
  Sex: Male

DRUGS (3)
  1. AMOXICILLIN [Suspect]
     Indication: BRONCHITIS
  2. HYDROCORTISONE SODIUM SUCCINATE [Suspect]
     Indication: RASH GENERALISED
     Route: 030
  3. CETIRIZINE HCL [Suspect]
     Indication: RASH GENERALISED
     Route: 048

REACTIONS (3)
  - KOUNIS SYNDROME [None]
  - RASH ERYTHEMATOUS [None]
  - ALLERGIC MYOCARDITIS [None]
